FAERS Safety Report 12317512 (Version 1)
Quarter: 2016Q2

REPORT INFORMATION
  Report Type: Spontaneous
  Country: US (occurrence: None)
  Receive Date: 20160428
  Receipt Date: 20160428
  Transmission Date: 20160815
  Serious: No
  Sender: FDA-Public Use
  Company Number: None

PATIENT
  Age: 21 Year
  Sex: Male
  Weight: 139.9 kg

DRUGS (6)
  1. PEG/L-ASPARAGINASE [Suspect]
     Active Substance: PEGASPARGASE
     Dates: end: 20110809
  2. CYTARABINE. [Suspect]
     Active Substance: CYTARABINE
     Dates: end: 20110805
  3. MERCAPTOPURINE. [Suspect]
     Active Substance: MERCAPTOPURINE
     Dates: end: 20110808
  4. METHOTREXATE [Suspect]
     Active Substance: METHOTREXATE
     Dates: end: 20110816
  5. CYCLOPHOSPHAMIDE. [Suspect]
     Active Substance: CYCLOPHOSPHAMIDE
     Dates: end: 20110726
  6. VINCRISTINE SULFATE. [Suspect]
     Active Substance: VINCRISTINE SULFATE
     Dates: end: 20110816

REACTIONS (3)
  - Colitis [None]
  - White blood cell count decreased [None]
  - Hepatic cirrhosis [None]

NARRATIVE: CASE EVENT DATE: 20110823
